FAERS Safety Report 4765165-0 (Version None)
Quarter: 2005Q3

REPORT INFORMATION
  Report Type: 
  Country: None (occurrence: None)
  Receive Date: 20050906
  Receipt Date: 20050818
  Transmission Date: 20060218
  Serious: Yes (Hospitalization, Disabling)
  Sender: FDA-Public Use
  Company Number: 400579

PATIENT
  Age: 24 Year
  Sex: Male
  Weight: 93.9 kg

DRUGS (38)
  1. ACCUTANE [Suspect]
     Indication: ACNE
     Dosage: 40 MG 2 PER DAY ORAL
     Route: 048
     Dates: start: 19890615
  2. BACTRIM DS [Concomitant]
  3. RETIN-A [Concomitant]
  4. PANOXYL (BENZOLY PEROXIDE) [Concomitant]
  5. BACTROBAN [Concomitant]
  6. BENZAC 5 (BENZOL PEROXIDE) [Concomitant]
  7. KENALOG-10 (TRIAMCINOLON ACETONIDE) [Concomitant]
  8. METROEL (METRONIDAZOLE) [Concomitant]
  9. DIFLUCAN [Concomitant]
  10. ERYTHROMYCIN [Concomitant]
  11. CLEOCIN [Concomitant]
  12. NIZORAL [Concomitant]
  13. LIDEX [Concomitant]
  14. CIPRO [Concomitant]
  15. BROMFED (BROMPHENIRAMINE MALEATE/PSEUDOEPHEDRINE HYDROCHLORIDE) [Concomitant]
  16. METAMUCIL (PSYLLIUM HUSK) [Concomitant]
  17. MYLANTA PLUS (ALGINIC ACID/ALUMINIUM HYDROXIDE/CALCIUM CARBONATE/MAGNE [Concomitant]
  18. GENERIC  UNKNOWN(GENERIC UNKNOWN) [Concomitant]
  19. KEFLEX [Concomitant]
  20. ANTIBIOTICS NOS (ANTIBIOTIC NOS) [Concomitant]
  21. LEVAQUIN [Concomitant]
  22. DURATUSS (GUAIFENESIN/PSEUDOEPHEDRINE HYDROCHLROIDE) [Concomitant]
  23. ZITHROMAX [Concomitant]
  24. BENDADRYL (*ACRIVASTINE/*AMMONIUM CHLORIDE/*CAMPHOR/*DIPHENHYDRAMINE H [Concomitant]
  25. TUSSIONEX (HYDROCODONE POLISTIREX/PHENYLTOLOXAMINE) [Concomitant]
  26. DOXYCYCLINE [Concomitant]
  27. LORTAB [Concomitant]
  28. ALLEGRA [Concomitant]
  29. IBUPROFEN [Concomitant]
  30. SUDAFED 12 HOUR [Concomitant]
  31. NIACIN (NIACIN) [Concomitant]
  32. SEPTRA DS [Concomitant]
  33. MOTRIN [Concomitant]
  34. DESOWEN (DESONID) [Concomitant]
  35. LOPROX (CICLOPIROX OLAMINE) [Concomitant]
  36. ACNE MEDICATION (ACNE MEDICATION NOS) [Concomitant]
  37. CEPHALEXIN [Concomitant]
  38. GAS-X (SIMETHICONE) [Concomitant]

REACTIONS (47)
  - ABDOMINAL PAIN UPPER [None]
  - ALANINE AMINOTRANSFERASE INCREASED [None]
  - ANAEMIA [None]
  - ANAL FISTULA [None]
  - APHTHOUS STOMATITIS [None]
  - ARTHRALGIA [None]
  - ASPARTATE AMINOTRANSFERASE INCREASED [None]
  - ATHEROSCLEROSIS [None]
  - BACK PAIN [None]
  - BLOOD ALKALINE PHOSPHATASE INCREASED [None]
  - BLOOD CHOLESTEROL INCREASED [None]
  - BLOOD TRIGLYCERIDES INCREASED [None]
  - BONE DISORDER [None]
  - CARDIAC DISORDER [None]
  - CHEST PAIN [None]
  - COLON ADENOMA [None]
  - COLONIC POLYP [None]
  - CORONARY ARTERY DISEASE [None]
  - CROHN'S DISEASE [None]
  - DECREASED APPETITE [None]
  - DIARRHOEA [None]
  - DIARRHOEA HAEMORRHAGIC [None]
  - DIZZINESS [None]
  - FATIGUE [None]
  - FLANK PAIN [None]
  - GASTROINTESTINAL DISORDER [None]
  - GASTROINTESTINAL HAEMORRHAGE [None]
  - GROIN PAIN [None]
  - ILEITIS [None]
  - INFLAMMATORY BOWEL DISEASE [None]
  - INTESTINAL HAEMORRHAGE [None]
  - IRRITABLE BOWEL SYNDROME [None]
  - LARGE INTESTINAL ULCER [None]
  - MULTI-ORGAN DISORDER [None]
  - NIGHT BLINDNESS [None]
  - PAIN [None]
  - PAIN IN EXTREMITY [None]
  - RECTAL HAEMORRHAGE [None]
  - SCAR [None]
  - SKIN DISORDER [None]
  - SKIN FISSURES [None]
  - SWEAT GLAND INFECTION [None]
  - ULCER [None]
  - VASCULAR CALCIFICATION [None]
  - VIRAL UPPER RESPIRATORY TRACT INFECTION [None]
  - VISUAL DISTURBANCE [None]
  - WEIGHT DECREASED [None]
